FAERS Safety Report 9742750 (Version 2)
Quarter: 2013Q4

REPORT INFORMATION
  Report Type: Spontaneous
  Country: None (occurrence: US)
  Receive Date: 20131210
  Receipt Date: 20131210
  Transmission Date: 20140711
  Serious: No
  Sender: FDA-Public Use
  Company Number: US-GILEAD-2009-0025742

PATIENT
  Sex: Female
  Weight: 79.38 kg

DRUGS (12)
  1. LETAIRIS [Suspect]
     Indication: PULMONARY ARTERIAL HYPERTENSION
     Route: 048
     Dates: start: 20091107, end: 20091123
  2. WARFARIN [Concomitant]
  3. TORSEMIDE [Concomitant]
  4. TOPROL [Concomitant]
  5. SINGULAIR [Concomitant]
  6. XOPENEX [Concomitant]
  7. LEVAQUIN [Concomitant]
  8. MIRENA [Concomitant]
  9. PREDNISONE [Concomitant]
  10. TYLENOL [Concomitant]
  11. ZOLOFT [Concomitant]
  12. MAGNESIUM OXIDE [Concomitant]

REACTIONS (2)
  - Oedema [Unknown]
  - Drug ineffective [Unknown]
